FAERS Safety Report 9696031 (Version 1)
Quarter: 2013Q4

REPORT INFORMATION
  Report Type: Spontaneous
  Country: US (occurrence: None)
  Receive Date: 20131115
  Receipt Date: 20131115
  Transmission Date: 20140711
  Serious: Yes (Life-Threatening, Hospitalization, Other)
  Sender: FDA-Public Use
  Company Number: CLON20130019

PATIENT
  Age: 7 Year
  Sex: Male

DRUGS (2)
  1. CLONIDINE HCL [Suspect]
     Indication: ATTENTION DEFICIT/HYPERACTIVITY DISORDER
     Route: 048
  2. CLONIDINE HCL [Suspect]
     Indication: AUTISM SPECTRUM DISORDER
     Route: 048

REACTIONS (9)
  - Unresponsive to stimuli [None]
  - Lethargy [None]
  - Miosis [None]
  - Heart rate increased [None]
  - Hypertension [None]
  - Blood pressure diastolic decreased [None]
  - Infection [None]
  - Product compounding quality issue [None]
  - Accidental overdose [None]
